FAERS Safety Report 8802447 (Version 2)
Quarter: 2012Q4

REPORT INFORMATION
  Report Type: 
  Country: US (occurrence: US)
  Receive Date: 20120921
  Receipt Date: 20121122
  Transmission Date: 20130627
  Serious: Yes (Death, Other)
  Sender: FDA-Public Use
  Company Number: US-ROCHE-1125901

PATIENT
  Sex: Female

DRUGS (2)
  1. AVASTIN [Suspect]
     Indication: OVARIAN CANCER
     Route: 065
  2. AVASTIN [Suspect]
     Indication: MALIGNANT NEOPLASM OF UTERINE ADNEXA

REACTIONS (2)
  - Ovarian cancer [Fatal]
  - Gastric ulcer perforation [Unknown]
